FAERS Safety Report 25048784 (Version 2)
Quarter: 2025Q1

REPORT INFORMATION
  Report Type: Spontaneous
  Country: CN (occurrence: CN)
  Receive Date: 20250307
  Receipt Date: 20250314
  Transmission Date: 20250409
  Serious: Yes (Other)
  Sender: ALCON
  Company Number: CN-ALCON LABORATORIES-ALC2025CN001255

PATIENT
  Age: 74 Year
  Sex: Female

DRUGS (1)
  1. FLUORESCITE [Suspect]
     Active Substance: FLUORESCEIN SODIUM
     Indication: Macular degeneration
     Route: 023
     Dates: start: 20250221, end: 20250221

REACTIONS (5)
  - Constipation [Recovering/Resolving]
  - Lip discolouration [Recovering/Resolving]
  - Oxygen saturation decreased [Recovering/Resolving]
  - Dysgeusia [Recovering/Resolving]
  - Headache [Recovering/Resolving]

NARRATIVE: CASE EVENT DATE: 20250221
